FAERS Safety Report 4885993-0 (Version None)
Quarter: 2006Q1

REPORT INFORMATION
  Report Type: 
  Country: None (occurrence: None)
  Receive Date: 20060117
  Receipt Date: 20060109
  Transmission Date: 20060701
  Serious: Yes (Other)
  Sender: FDA-Public Use
  Company Number: 2006005640

PATIENT
  Age: 10 Year
  Sex: Female

DRUGS (1)
  1. GENOTROPIN [Suspect]
     Indication: GROWTH HORMONE DEFICIENCY
     Dosage: 0.5 MG (0.5 MG)
     Dates: start: 20050801

REACTIONS (4)
  - ARTHROPOD BITE [None]
  - LOCALISED INFECTION [None]
  - SCRATCH [None]
  - SEPSIS [None]
